FAERS Safety Report 4993028-4 (Version None)
Quarter: 2006Q2

REPORT INFORMATION
  Report Type: 
  Country: None (occurrence: None)
  Receive Date: 20060504
  Receipt Date: 20050218
  Transmission Date: 20061013
  Serious: Yes (Hospitalization)
  Sender: FDA-Public Use
  Company Number: US-MERCK-0502USA02632

PATIENT
  Age: 65 Year
  Sex: Female
  Weight: 80 kg

DRUGS (10)
  1. VIOXX [Suspect]
     Indication: ARTHRITIS
     Route: 048
     Dates: start: 20010601, end: 20040901
  2. VIOXX [Suspect]
     Indication: OSTEOARTHRITIS
     Route: 048
     Dates: start: 20010601, end: 20040901
  3. SPIRONOLACTONE [Concomitant]
     Route: 065
     Dates: start: 19990301, end: 20040101
  4. NORVASC [Concomitant]
     Route: 065
     Dates: start: 19990201, end: 20000701
  5. ASPIRIN [Concomitant]
     Indication: PROPHYLAXIS
     Route: 065
     Dates: start: 20030101
  6. HYDROCHLOROTHIAZIDE [Concomitant]
     Route: 065
     Dates: start: 19990301
  7. XENICAL [Concomitant]
     Route: 065
     Dates: start: 19981201
  8. ACTOS [Concomitant]
     Route: 065
  9. METFORMIN [Concomitant]
     Route: 065
  10. NAPROXEN [Concomitant]
     Indication: ARTHRITIS
     Route: 065
     Dates: start: 20001201

REACTIONS (26)
  - ANGINA UNSTABLE [None]
  - AORTIC VALVE STENOSIS [None]
  - BUNDLE BRANCH BLOCK RIGHT [None]
  - CARDIAC DISORDER [None]
  - CARDIAC MURMUR [None]
  - CAROTID ARTERY STENOSIS [None]
  - CORONARY ARTERY DISEASE [None]
  - CORONARY ARTERY STENOSIS [None]
  - DILATATION ATRIAL [None]
  - DIVERTICULUM [None]
  - ELECTROCARDIOGRAM Q WAVES [None]
  - ELECTROCARDIOGRAM ST-T CHANGE [None]
  - EMOTIONAL DISTRESS [None]
  - FATIGUE [None]
  - GASTRITIS [None]
  - HAEMORRHOIDS [None]
  - HEADACHE [None]
  - LIVER FUNCTION TEST ABNORMAL [None]
  - MITRAL VALVE INCOMPETENCE [None]
  - MYOCARDIAL INFARCTION [None]
  - OEDEMA PERIPHERAL [None]
  - PAIN IN EXTREMITY [None]
  - PROTHROMBIN TIME PROLONGED [None]
  - ROTATOR CUFF SYNDROME [None]
  - THROAT IRRITATION [None]
  - WEIGHT INCREASED [None]
